FAERS Safety Report 9206126 (Version 2)
Quarter: 2013Q2

REPORT INFORMATION
  Report Type: Spontaneous
  Country: US (occurrence: US)
  Receive Date: 20130403
  Receipt Date: 20130417
  Transmission Date: 20140414
  Serious: Yes (Other)
  Sender: FDA-Public Use
  Company Number: US-GENZYME-CERZ-1002880

PATIENT
  Age: 67 Year
  Sex: Male
  Weight: 86.62 kg

DRUGS (13)
  1. CEREZYME [Suspect]
     Indication: GAUCHER^S DISEASE
     Dosage: 5200 U, Q2W
     Route: 042
     Dates: start: 20040831
  2. CEREZYME [Suspect]
     Dosage: UNK
     Route: 065
     Dates: start: 20101210, end: 20110902
  3. CEREZYME [Suspect]
     Dosage: UNK
     Dates: start: 20120119, end: 20130102
  4. JANTOVEN [Concomitant]
     Indication: PRODUCT USED FOR UNKNOWN INDICATION
     Dosage: 2.5 MG, QD
     Route: 048
     Dates: start: 20130218
  5. JANTOVEN [Concomitant]
     Dosage: 5 MG, QD
     Route: 048
     Dates: start: 20130218
  6. AMIODARONE HCL [Concomitant]
     Indication: PRODUCT USED FOR UNKNOWN INDICATION
     Dosage: 100 MG, QD
     Route: 048
     Dates: start: 20120703
  7. PATANOL [Concomitant]
     Indication: PRODUCT USED FOR UNKNOWN INDICATION
     Dosage: 1
     Route: 047
     Dates: start: 20120517
  8. CYANOCOBALAMIN [Concomitant]
     Indication: PRODUCT USED FOR UNKNOWN INDICATION
     Dosage: 100 MCG, 1X/W
     Route: 030
     Dates: start: 20120504
  9. MIRAPEX [Concomitant]
     Indication: PRODUCT USED FOR UNKNOWN INDICATION
     Dosage: 0.25 MG, TID
     Route: 048
     Dates: start: 20120410
  10. DILTIAZEM HCL [Concomitant]
     Indication: PRODUCT USED FOR UNKNOWN INDICATION
     Dosage: 60 MG, TID
     Route: 048
     Dates: start: 20130326
  11. WARFARIN [Concomitant]
     Indication: PRODUCT USED FOR UNKNOWN INDICATION
     Dosage: 2.5 MG, TID
     Route: 065
     Dates: start: 20130206
  12. WARFARIN [Concomitant]
     Dosage: 5 MG, TID
     Route: 065
     Dates: start: 20130206
  13. AZILECT [Concomitant]
     Indication: PRODUCT USED FOR UNKNOWN INDICATION
     Dosage: UNK
     Route: 065

REACTIONS (1)
  - Parkinson^s disease [Not Recovered/Not Resolved]
